FAERS Safety Report 6425713-1 (Version None)
Quarter: 2009Q4

REPORT INFORMATION
  Report Type: 
  Country: None (occurrence: None)
  Receive Date: 20091103
  Receipt Date: 20091023
  Transmission Date: 20100525
  Serious: Yes (Hospitalization)
  Sender: FDA-Public Use
  Company Number: PHEH2009US14760

PATIENT
  Sex: Male

DRUGS (9)
  1. EXJADE [Suspect]
     Indication: MYELODYSPLASTIC SYNDROME
     Dosage: 500MG, DAILY
     Route: 048
     Dates: start: 20090915
  2. NITROSTAT [Concomitant]
  3. COREG [Concomitant]
  4. RANEXA [Concomitant]
  5. RAMIPRIL [Concomitant]
  6. MEGESTROL ACETATE [Concomitant]
  7. FLOMAX [Concomitant]
  8. ONDANSETRON [Concomitant]
  9. NEXIUM [Concomitant]

REACTIONS (3)
  - ASTHENIA [None]
  - FATIGUE [None]
  - RENAL FAILURE CHRONIC [None]
